APPROVED DRUG PRODUCT: ICATIBANT ACETATE
Active Ingredient: ICATIBANT ACETATE
Strength: EQ 30MG BASE/3ML (EQ 10MG BASE/ML)
Dosage Form/Route: INJECTABLE;SUBCUTANEOUS
Application: A213054 | Product #001
Applicant: CAPLIN STERILES LTD
Approved: Oct 5, 2020 | RLD: No | RS: No | Type: DISCN